FAERS Safety Report 11999483 (Version 2)
Quarter: 2016Q1

REPORT INFORMATION
  Report Type: Spontaneous
  Country: PL (occurrence: PL)
  Receive Date: 20160204
  Receipt Date: 20160224
  Transmission Date: 20160526
  Serious: Yes (Other)
  Sender: FDA-Public Use
  Company Number: PL-SUN PHARMACEUTICAL INDUSTRIES LTD-2016RR-110326

PATIENT

DRUGS (1)
  1. KLABAX [Suspect]
     Active Substance: CLARITHROMYCIN
     Indication: UPPER RESPIRATORY TRACT INFECTION
     Dosage: 500 MG, BID
     Route: 048
     Dates: start: 20160118, end: 20160119

REACTIONS (3)
  - Tachycardia [Unknown]
  - Chills [Unknown]
  - Palpitations [Unknown]

NARRATIVE: CASE EVENT DATE: 20160118
